FAERS Safety Report 7951456 (Version 2)
Quarter: 2016Q1

REPORT INFORMATION
  Report Type: Spontaneous
  Country: US (occurrence: US)
  Receive Date: 20110519
  Receipt Date: 20160127
  Transmission Date: 20160526
  Serious: Yes (Other)
  Sender: FDA-Public Use
  Company Number: US-BRISTOL-MYERS SQUIBB COMPANY-15283799

PATIENT
  Sex: Female

DRUGS (6)
  1. BARACLUDE [Suspect]
     Active Substance: ENTECAVIR
     Indication: PRODUCT USED FOR UNKNOWN INDICATION
     Dosage: 0.5 MG, QD
     Route: 065
     Dates: start: 200707
  2. BARACLUDE [Suspect]
     Active Substance: ENTECAVIR
     Dosage: 0.5 MG, QD
     Route: 065
     Dates: start: 200805
  3. ZOLOFT [Concomitant]
     Active Substance: SERTRALINE HYDROCHLORIDE
     Indication: PRODUCT USED FOR UNKNOWN INDICATION
     Dosage: 50 MG, QD
     Route: 065
  4. BARACLUDE [Suspect]
     Active Substance: ENTECAVIR
     Dosage: 1 MG, QD
     Route: 065
     Dates: start: 200812
  5. MULTI VITAMIN [Concomitant]
     Active Substance: VITAMINS
     Indication: PRODUCT USED FOR UNKNOWN INDICATION
     Route: 065
  6. DESOGESTREL + ETHINYLESTRADIOL [Concomitant]
     Indication: PRODUCT USED FOR UNKNOWN INDICATION
     Dosage: .15 MG, QD
     Route: 065

REACTIONS (3)
  - Maternal exposure during pregnancy [Recovered/Resolved]
  - Drug resistance [Unknown]
  - Live birth [Unknown]

NARRATIVE: CASE EVENT DATE: 2008
